FAERS Safety Report 18980021 (Version 1)
Quarter: 2021Q1

REPORT INFORMATION
  Report Type: Spontaneous
  Country: US (occurrence: US)
  Receive Date: 20210305
  Receipt Date: 20210305
  Transmission Date: 20210420
  Serious: Yes (Other)
  Sender: FDA-Public Use
  Company Number: None

PATIENT
  Age: 72 Year
  Sex: Male
  Weight: 64.5 kg

DRUGS (5)
  1. TRIFERIC [Suspect]
     Active Substance: FERRIC PYROPHOSPHATE CITRATE
     Indication: PRODUCT USED FOR UNKNOWN INDICATION
     Dosage: ?          QUANTITY:1PK TO 25 GALL. H2O?FREQUENCY: EVERY DIALYSYS TX;?TAKEN: ADMINISTERED ... THE CENTRAL BICARB LOOP??
  2. ATORVASTATIN [Concomitant]
     Active Substance: ATORVASTATIN
  3. FLOMAX [Concomitant]
     Active Substance: TAMSULOSIN HYDROCHLORIDE
  4. METOPROLOL. [Concomitant]
     Active Substance: METOPROLOL
  5. GABAPENTIN. [Concomitant]
     Active Substance: GABAPENTIN

REACTIONS (2)
  - Thrombosis [None]
  - Dialysis [None]

NARRATIVE: CASE EVENT DATE: 20210210
